FAERS Safety Report 14305167 (Version 1)
Quarter: 2017Q4

REPORT INFORMATION
  Report Type: Report from Study
  Country: JP (occurrence: JP)
  Receive Date: 20171219
  Receipt Date: 20171219
  Transmission Date: 20180321
  Serious: Yes (Hospitalization, Other)
  Sender: FDA-Public Use
  Company Number: JP-OTSUKA-000173

PATIENT
  Age: 61 Year
  Sex: Male
  Weight: 57.5 kg

DRUGS (19)
  1. ARIPIPRAZOLE. [Suspect]
     Active Substance: ARIPIPRAZOLE
     Dosage: 12 MG, QD
     Route: 048
     Dates: start: 20070608, end: 20070614
  2. ARIPIPRAZOLE. [Suspect]
     Active Substance: ARIPIPRAZOLE
     Dosage: 18 MG, QD
     Route: 048
     Dates: start: 20071029, end: 20071108
  3. ARIPIPRAZOLE. [Suspect]
     Active Substance: ARIPIPRAZOLE
     Dosage: 24 MG, QD
     Route: 048
     Dates: start: 20071109, end: 20071210
  4. TEGRETOL [Concomitant]
     Active Substance: CARBAMAZEPINE
     Indication: SCHIZOPHRENIA
     Dosage: 200 MG, QD
     Route: 048
     Dates: start: 20070404, end: 20070628
  5. LODOPIN [Concomitant]
     Active Substance: ZOTEPINE
     Dosage: 100 MG, QD
     Route: 048
     Dates: start: 20070615, end: 20070621
  6. NU LOTAN [Concomitant]
     Active Substance: LOSARTAN
     Indication: PRODUCT USED FOR UNKNOWN INDICATION
     Dosage: 100 MG, QD
     Route: 048
     Dates: start: 2007
  7. ARIPIPRAZOLE. [Suspect]
     Active Substance: ARIPIPRAZOLE
     Dosage: 18 MG, QD
     Route: 048
     Dates: start: 20070615, end: 20070621
  8. ARIPIPRAZOLE. [Suspect]
     Active Substance: ARIPIPRAZOLE
     Dosage: 12 MG, QD
     Route: 048
     Dates: start: 20071009, end: 20071028
  9. LODOPIN [Concomitant]
     Active Substance: ZOTEPINE
     Indication: SCHIZOPHRENIA
     Dosage: 200 MG, QD
     Route: 048
     Dates: start: 20070404, end: 20070614
  10. LODOPIN [Concomitant]
     Active Substance: ZOTEPINE
     Dosage: 100 MG, QD
     Route: 047
     Dates: start: 20071211
  11. ARIPIPRAZOLE. [Suspect]
     Active Substance: ARIPIPRAZOLE
     Dosage: 6 MG, QD
     Route: 048
     Dates: start: 20070601, end: 20070607
  12. ARIPIPRAZOLE. [Suspect]
     Active Substance: ARIPIPRAZOLE
     Dosage: 24 MG, QD
     Route: 048
     Dates: start: 20070622, end: 20070917
  13. LODOPIN [Concomitant]
     Active Substance: ZOTEPINE
     Dosage: 50 MG, QD
     Route: 048
     Dates: start: 20070622, end: 20071210
  14. ROHYPNOL [Concomitant]
     Active Substance: FLUNITRAZEPAM
     Indication: SCHIZOPHRENIA
     Dosage: 2 MG, QD
     Route: 048
     Dates: start: 20070404
  15. YODEL [Concomitant]
     Active Substance: SENNA LEAF
     Indication: PRODUCT USED FOR UNKNOWN INDICATION
     Dosage: 160 MG, QD
     Route: 048
     Dates: start: 20070404, end: 20071210
  16. ARIPIPRAZOLE. [Suspect]
     Active Substance: ARIPIPRAZOLE
     Indication: SCHIZOPHRENIA
     Dosage: 3 MG, QD
     Route: 048
     Dates: start: 20070516, end: 20070531
  17. MAGMITT [Concomitant]
     Active Substance: MAGNESIUM OXIDE
     Indication: PRODUCT USED FOR UNKNOWN INDICATION
     Dosage: 1.5 G, QD
     Route: 048
     Dates: start: 20070404, end: 20071210
  18. TEGRETOL [Concomitant]
     Active Substance: CARBAMAZEPINE
     Dosage: 300 MG, QD
     Route: 048
     Dates: start: 20070629
  19. DAONIL [Concomitant]
     Active Substance: GLYBURIDE
     Indication: PRODUCT USED FOR UNKNOWN INDICATION
     Dosage: 2.5 MG, QD
     Route: 048
     Dates: start: 2007

REACTIONS (6)
  - Psychiatric symptom [Unknown]
  - Bladder neoplasm [Recovered/Resolved]
  - Angina unstable [Recovered/Resolved]
  - Psychotic symptom [Unknown]
  - Oedema peripheral [Recovered/Resolved]
  - Abdominal discomfort [Recovering/Resolving]

NARRATIVE: CASE EVENT DATE: 20070711
